FAERS Safety Report 9014714 (Version 7)
Quarter: 2014Q4

REPORT INFORMATION
  Report Type: Report from Study
  Country: IT (occurrence: IT)
  Receive Date: 20130115
  Receipt Date: 20141222
  Transmission Date: 20150529
  Serious: Yes (Hospitalization)
  Sender: FDA-Public Use
  Company Number: IT-TEVA-380032USA

PATIENT
  Age: 62 Year
  Sex: Female
  Weight: 75 kg

DRUGS (8)
  1. CIPROFLOXACIN. [Concomitant]
     Active Substance: CIPROFLOXACIN
     Indication: INFECTION PROPHYLAXIS
     Dates: start: 20121213
  2. PREDNISONE. [Concomitant]
     Active Substance: PREDNISONE
     Dates: start: 20121213, end: 20121215
  3. PREDNISONE. [Concomitant]
     Active Substance: PREDNISONE
     Indication: TUMOUR LYSIS SYNDROME
     Dates: start: 20121210, end: 20121210
  4. CIPROFLOXACIN. [Concomitant]
     Active Substance: CIPROFLOXACIN
     Dates: start: 20121214, end: 20121217
  5. BENDAMUSTINE [Suspect]
     Active Substance: BENDAMUSTINE
     Dosage: 171.9 MILLIGRAM DAILY; CYCLE 1 DAY 2
     Route: 042
     Dates: start: 20121211
  6. OBINUTUZUMAB [Suspect]
     Active Substance: OBINUTUZUMAB
     Indication: NON-HODGKIN^S LYMPHOMA UNSPECIFIED HISTOLOGY INDOLENT
     Dosage: 1000 MILLIGRAM DAILY;
     Route: 042
     Dates: start: 20121210, end: 20121210
  7. BENDAMUSTINE [Suspect]
     Active Substance: BENDAMUSTINE
     Indication: NON-HODGKIN^S LYMPHOMA UNSPECIFIED HISTOLOGY INDOLENT
     Dosage: 171.9 MILLIGRAM DAILY; CYCLE 1 DAY 1
     Route: 042
     Dates: start: 20121210
  8. PARACETAMOL [Concomitant]
     Active Substance: ACETAMINOPHEN
     Indication: PYREXIA
     Dates: start: 20121213, end: 20121215

REACTIONS (1)
  - Pleural effusion [Recovered/Resolved]

NARRATIVE: CASE EVENT DATE: 20121213
